FAERS Safety Report 9511989 (Version 1)
Quarter: 2013Q3

REPORT INFORMATION
  Report Type: Spontaneous
  Country: JP (occurrence: JP)
  Receive Date: 20130910
  Receipt Date: 20130910
  Transmission Date: 20140515
  Serious: Yes (Other)
  Sender: FDA-Public Use
  Company Number: PHHY2013JP098844

PATIENT
  Sex: Female

DRUGS (1)
  1. DIOVAN [Suspect]
     Indication: HYPERTENSION
     Dosage: UNK UKN, UNK
     Route: 048
     Dates: end: 201308

REACTIONS (5)
  - Actinic cheilitis [Unknown]
  - Lip erosion [Unknown]
  - Chapped lips [Unknown]
  - Nocturia [Unknown]
  - Eye pain [Unknown]
